FAERS Safety Report 18130346 (Version 1)
Quarter: 2020Q3

REPORT INFORMATION
  Report Type: Report from Study
  Country: US (occurrence: US)
  Receive Date: 20200810
  Receipt Date: 20200810
  Transmission Date: 20201103
  Serious: Yes (Death, Other)
  Sender: FDA-Public Use
  Company Number: US-BAYER-2020-163972

PATIENT

DRUGS (2)
  1. ASPIRIN. [Suspect]
     Active Substance: ASPIRIN
  2. TICAGRELOR. [Suspect]
     Active Substance: TICAGRELOR

REACTIONS (2)
  - Labelled drug-drug interaction medication error [Fatal]
  - Haemorrhagic stroke [Fatal]
